FAERS Safety Report 17079547 (Version 1)
Quarter: 2019Q4

REPORT INFORMATION
  Report Type: Spontaneous
  Country: US (occurrence: US)
  Receive Date: 20191127
  Receipt Date: 20191127
  Transmission Date: 20200122
  Serious: No
  Sender: FDA-Public Use
  Company Number: US-AUROBINDO-AUR-APL-2019-001420

PATIENT

DRUGS (1)
  1. GABAPENTIN TABLETS [Suspect]
     Active Substance: GABAPENTIN
     Indication: TRIGEMINAL NEURALGIA
     Dosage: 600 MILLIGRAM, 1 TABLET THREE TIMES A DAY
     Route: 048
     Dates: start: 201812

REACTIONS (3)
  - Therapeutic response shortened [Recovered/Resolved]
  - Extra dose administered [Unknown]
  - Hypoaesthesia [Recovered/Resolved]
